FAERS Safety Report 17405488 (Version 3)
Quarter: 2020Q3

REPORT INFORMATION
  Report Type: Report from Study
  Country: None (occurrence: US)
  Receive Date: 20200212
  Receipt Date: 20200702
  Transmission Date: 20201102
  Serious: Yes (Hospitalization)
  Sender: FDA-Public Use
  Company Number: US-ABBVIE-20K-163-3269266-00

PATIENT
  Age: 34 Year
  Sex: Female
  Weight: 108.96 kg

DRUGS (2)
  1. PARNATE [Concomitant]
     Active Substance: TRANYLCYPROMINE SULFATE
     Indication: DEPRESSION
  2. HUMIRA [Suspect]
     Active Substance: ADALIMUMAB
     Indication: HIDRADENITIS
     Dosage: CF
     Route: 058
     Dates: start: 201910, end: 202001

REACTIONS (2)
  - Memory impairment [Not Recovered/Not Resolved]
  - Major depression [Recovering/Resolving]

NARRATIVE: CASE EVENT DATE: 202001
